FAERS Safety Report 18589850 (Version 1)
Quarter: 2020Q4

REPORT INFORMATION
  Report Type: Spontaneous
  Country: US (occurrence: US)
  Receive Date: 20201205
  Receipt Date: 20201205
  Transmission Date: 20210114
  Serious: No
  Sender: FDA-Public Use
  Company Number: None

PATIENT
  Sex: Female

DRUGS (1)
  1. ENBREL [Suspect]
     Active Substance: ETANERCEPT
     Indication: RHEUMATOID ARTHRITIS
     Route: 058

REACTIONS (8)
  - Sinusitis [None]
  - Dry skin [None]
  - Pruritus [None]
  - Lymphadenopathy [None]
  - Pain [None]
  - Skin disorder [None]
  - Product dose omission issue [None]
  - Malaise [None]
